FAERS Safety Report 4918498-9 (Version None)
Quarter: 2006Q1

REPORT INFORMATION
  Report Type: 
  Country: None (occurrence: None)
  Receive Date: 20060214
  Receipt Date: 20060125
  Transmission Date: 20060701
  Serious: Yes (Life-Threatening, Hospitalization)
  Sender: FDA-Public Use
  Company Number: ES200602000021

PATIENT
  Sex: Male

DRUGS (3)
  1. PROZAC [Suspect]
     Dosage: 20 MG
  2. HUMALOG 25% LISPRO, 75% NPL (LISPRO 25% NPL UNKNOWN FORMULATION) [Concomitant]
  3. LANTUS [Concomitant]

REACTIONS (3)
  - COMA [None]
  - DRUG INTERACTION [None]
  - HYPOGLYCAEMIA [None]
